FAERS Safety Report 5909603-6 (Version None)
Quarter: 2008Q4

REPORT INFORMATION
  Report Type: 
  Country: None (occurrence: None)
  Receive Date: 20081002
  Receipt Date: 20080923
  Transmission Date: 20090506
  Serious: Yes (Other)
  Sender: FDA-Public Use
  Company Number: GXKR2008ES09140

PATIENT
  Age: 78 Year
  Sex: Male

DRUGS (2)
  1. CAPTOPRIL [Suspect]
     Indication: HYPERTENSION
     Dosage: 50 MG, BID, ORAL
     Route: 048
     Dates: start: 20060410
  2. FUROSEMIDE (NGX) (FUROSEMIDE) TABLET, 40MG [Suspect]
     Indication: HYPERTENSION
     Dosage: 20 MG/DAY, ORAL
     Route: 048
     Dates: start: 20080310, end: 20080801

REACTIONS (2)
  - HYPOTENSION [None]
  - MEDICATION ERROR [None]
